FAERS Safety Report 4697209-9 (Version None)
Quarter: 2005Q2

REPORT INFORMATION
  Report Type: 
  Country: None (occurrence: None)
  Receive Date: 20050622
  Receipt Date: 20050328
  Transmission Date: 20051028
  Serious: Yes (Other)
  Sender: FDA-Public Use
  Company Number: CA-GLAXOSMITHKLINE-A0551792A

PATIENT
  Age: 67 Year
  Sex: Male
  Weight: 77.3 kg

DRUGS (6)
  1. AVODART [Suspect]
     Indication: BENIGN PROSTATIC HYPERPLASIA
     Dosage: .5MG AT NIGHT
     Dates: start: 20050201, end: 20050301
  2. FLOMAX [Concomitant]
  3. VASOTEC [Concomitant]
     Indication: HYPERTENSION
     Dosage: 20MG TWICE PER DAY
  4. NORVASC [Concomitant]
     Indication: HYPERTENSION
     Dosage: 10MG PER DAY
  5. ATENOLOL [Concomitant]
     Indication: HYPERTENSION
     Dosage: 100MG PER DAY
  6. HYDROCHLOROTHIAZIDE [Concomitant]
     Indication: BENIGN PROSTATIC HYPERPLASIA
     Dosage: 12.5MG PER DAY

REACTIONS (8)
  - ANOREXIA [None]
  - ANXIETY [None]
  - DECREASED INTEREST [None]
  - DEPRESSION [None]
  - INSOMNIA [None]
  - MALAISE [None]
  - PANIC REACTION [None]
  - SUICIDAL IDEATION [None]
